FAERS Safety Report 9286547 (Version 1)
Quarter: 2013Q2

REPORT INFORMATION
  Report Type: Spontaneous
  Country: US (occurrence: None)
  Receive Date: 20130503
  Receipt Date: 20130503
  Transmission Date: 20140414
  Serious: Yes (Other)
  Sender: FDA-Public Use
  Company Number: KAD201304-000492

PATIENT
  Age: 55 Year
  Sex: Female

DRUGS (2)
  1. RIBAVIRIN (RIBAVIRIN) [Suspect]
     Indication: HEPATITIS C
     Dosage: STOPPED
  2. PEGINTERFERON [Suspect]
     Indication: HEPATITIS C
     Dosage: STOPPED

REACTIONS (6)
  - Renal failure chronic [None]
  - Pancytopenia [None]
  - Pneumonia [None]
  - Cryoglobulins present [None]
  - Hepatitis C RNA increased [None]
  - Haemodialysis [None]
